FAERS Safety Report 7118116-8 (Version None)
Quarter: 2010Q4

REPORT INFORMATION
  Report Type: 
  Country: None (occurrence: None)
  Receive Date: 20101123
  Receipt Date: 20101108
  Transmission Date: 20110411
  Serious: No
  Sender: FDA-Public Use
  Company Number: US-PFIZER INC-2010109040

PATIENT
  Sex: Male
  Weight: 91.61 kg

DRUGS (1)
  1. VIAGRA [Suspect]
     Indication: SEXUAL DYSFUNCTION
     Dosage: 50 MG, 1 TAB 1 HR PRIOR TO SEXUAL INTERCOURSE NOT TO EXCEED MORE THAN 1 A DAY

REACTIONS (2)
  - HEADACHE [None]
  - NASAL CONGESTION [None]
